FAERS Safety Report 22620513 (Version 1)
Quarter: 2023Q2

REPORT INFORMATION
  Report Type: Spontaneous
  Country: GR (occurrence: GR)
  Receive Date: 20230620
  Receipt Date: 20230620
  Transmission Date: 20230721
  Serious: Yes (Hospitalization, Other)
  Sender: FDA-Public Use
  Company Number: GR-002147023-NVSC2023GR123136

PATIENT
  Age: 54 Year
  Sex: Female

DRUGS (8)
  1. ETANERCEPT [Suspect]
     Active Substance: ETANERCEPT
     Indication: Product used for unknown indication
     Dosage: UNK
     Route: 065
  2. METHOTREXATE [Suspect]
     Active Substance: METHOTREXATE
     Indication: Product used for unknown indication
     Dosage: 7.5 MILLIGRAM, QW
     Route: 065
  3. METHOTREXATE [Suspect]
     Active Substance: METHOTREXATE
     Dosage: UNK
     Route: 065
     Dates: start: 2005
  4. INFLIXIMAB [Suspect]
     Active Substance: INFLIXIMAB
     Indication: Psoriasis
     Dosage: UNK
     Route: 065
  5. INFLIXIMAB [Suspect]
     Active Substance: INFLIXIMAB
     Indication: Arthritis
  6. ADALIMUMAB [Concomitant]
     Active Substance: ADALIMUMAB
     Indication: Product used for unknown indication
     Dosage: UNK
     Route: 065
  7. SECUKINUMAB [Concomitant]
     Active Substance: SECUKINUMAB
     Indication: Product used for unknown indication
     Dosage: 300 MILLIGRAM, MONTHLY (PRECEDED BY LOADING DOSE)
     Route: 065
  8. SECUKINUMAB [Concomitant]
     Active Substance: SECUKINUMAB
     Dosage: 150 MILLIGRAM, MONTHLY
     Route: 065

REACTIONS (11)
  - C-reactive protein increased [Unknown]
  - Pyrexia [Unknown]
  - Erythema nodosum [Recovering/Resolving]
  - Rash [Unknown]
  - Red blood cell sedimentation rate increased [Unknown]
  - Pyoderma gangrenosum [Unknown]
  - Soft tissue infection [Unknown]
  - Osteoarthritis [Unknown]
  - Arthritis [Unknown]
  - Depression [Unknown]
  - Psoriasis [Unknown]

NARRATIVE: CASE EVENT DATE: 20140101
